FAERS Safety Report 24453639 (Version 2)
Quarter: 2024Q4

REPORT INFORMATION
  Report Type: Report from Study
  Country: US (occurrence: US)
  Receive Date: 20241017
  Receipt Date: 20241018
  Transmission Date: 20250114
  Serious: No
  Sender: ROCHE
  Company Number: US-ROCHE-3381789

PATIENT
  Age: 60 Year
  Sex: Female
  Weight: 89.14 kg

DRUGS (18)
  1. RITUXAN [Suspect]
     Active Substance: RITUXIMAB
     Indication: Pulmonary fibrosis
     Dosage: INFUSE 1G IVX1, REPEAT ADDITIONAL RITUXIMAB 1G IVX1 2 WEEKS LATER EVERY 6 MONTHSX1
     Route: 042
  2. RITUXAN [Suspect]
     Active Substance: RITUXIMAB
     Indication: Sjogren^s syndrome
  3. CELLCEPT [Suspect]
     Active Substance: MYCOPHENOLATE MOFETIL
     Indication: Product used for unknown indication
     Route: 048
  4. ACETAMINOPHEN SMN [Concomitant]
     Route: 048
  5. BENADRYL [Concomitant]
     Active Substance: DIPHENHYDRAMINE HYDROCHLORIDE
     Route: 042
  6. SOLU-MEDROL [Concomitant]
     Active Substance: METHYLPREDNISOLONE SODIUM SUCCINATE
  7. DEXILANT [Concomitant]
     Active Substance: DEXLANSOPRAZOLE
  8. ALBUTEROL [Concomitant]
     Active Substance: ALBUTEROL
  9. ESTRADIOL;PROGESTERONE [Concomitant]
  10. CRANBERRY [Concomitant]
     Active Substance: CRANBERRY
  11. HYDROXYCHLOROQUINE [Concomitant]
     Active Substance: HYDROXYCHLOROQUINE
  12. IPRATROPIUM [Concomitant]
     Active Substance: IPRATROPIUM
  13. OFEV [Concomitant]
     Active Substance: NINTEDANIB
  14. DOCONEXENT\ICOSAPENT [Concomitant]
     Active Substance: DOCONEXENT\ICOSAPENT
  15. PREDNISOLONE [Concomitant]
     Active Substance: PREDNISOLONE
  16. SULFAMETHOXAZOLE\TRIMETHOPRIM [Concomitant]
     Active Substance: SULFAMETHOXAZOLE\TRIMETHOPRIM
  17. VITAMIN D3 [Concomitant]
     Active Substance: CHOLECALCIFEROL
  18. ZINC [Concomitant]
     Active Substance: ZINC

REACTIONS (2)
  - Off label use [Unknown]
  - No adverse event [Unknown]
